FAERS Safety Report 6808782-6 (Version None)
Quarter: 2010Q2

REPORT INFORMATION
  Report Type: 
  Country: None (occurrence: None)
  Receive Date: 20100630
  Receipt Date: 20091007
  Transmission Date: 20101027
  Serious: No
  Sender: FDA-Public Use
  Company Number: US-PFIZER INC-2009261656

PATIENT
  Sex: Female
  Weight: 99.8 kg

DRUGS (14)
  1. ZYVOX [Suspect]
     Indication: STAPHYLOCOCCAL INFECTION
     Dosage: 600 MG, 2X/DAY
     Route: 048
     Dates: start: 20080101, end: 20080101
  2. LEVOTHYROXINE SODIUM [Concomitant]
  3. ZETIA [Concomitant]
  4. COUMADIN [Concomitant]
  5. PRINIVIL [Concomitant]
  6. LOPRESSOR [Concomitant]
  7. LASIX [Concomitant]
  8. POTASSIUM [Concomitant]
  9. MUCINEX [Concomitant]
  10. LIBRIUM [Concomitant]
  11. VICODIN [Concomitant]
  12. MIRALAX [Concomitant]
  13. ENULOSE [Concomitant]
  14. ELAVIL [Concomitant]

REACTIONS (2)
  - DRUG INEFFECTIVE [None]
  - EXPIRED DRUG ADMINISTERED [None]
